FAERS Safety Report 12927609 (Version 1)
Quarter: 2016Q4

REPORT INFORMATION
  Report Type: Report from Study
  Country: US (occurrence: US)
  Receive Date: 20161109
  Receipt Date: 20161109
  Transmission Date: 20170207
  Serious: Yes (Hospitalization, Other)
  Sender: FDA-Public Use
  Company Number: US-ANTARES PHARMA, INC.-2016-LIT-ME-0326

PATIENT
  Age: 49 Year
  Sex: Female

DRUGS (3)
  1. THALIDOMIDE [Suspect]
     Active Substance: THALIDOMIDE
     Indication: ROSAI-DORFMAN SYNDROME
  2. THALIDOMIDE [Suspect]
     Active Substance: THALIDOMIDE
  3. METHOTREXATE. [Suspect]
     Active Substance: METHOTREXATE
     Indication: ROSAI-DORFMAN SYNDROME
     Dosage: 15 MG, QWK

REACTIONS (3)
  - Nodule [Unknown]
  - Rash [Unknown]
  - Off label use [Recovered/Resolved]
